FAERS Safety Report 6688446-2 (Version None)
Quarter: 2010Q2

REPORT INFORMATION
  Report Type: 
  Country: None (occurrence: None)
  Receive Date: 20100413
  Receipt Date: 20100406
  Transmission Date: 20101027
  Serious: Yes (Other)
  Sender: FDA-Public Use
  Company Number: 2010SP020036

PATIENT
  Age: 14 Year
  Sex: Female

DRUGS (2)
  1. DESLORATADINE [Suspect]
     Indication: HYPERSENSITIVITY
     Dosage: 5 MG; QD; PO
     Route: 048
     Dates: start: 20100331, end: 20100401
  2. DESLORATADINE [Suspect]
     Indication: SEASONAL ALLERGY
     Dosage: 5 MG; QD; PO
     Route: 048
     Dates: start: 20100331, end: 20100401

REACTIONS (1)
  - ANGIOEDEMA [None]
